FAERS Safety Report 4502273-3 (Version None)
Quarter: 2004Q4

REPORT INFORMATION
  Report Type: 
  Country: None (occurrence: None)
  Receive Date: 20041116
  Receipt Date: 19970716
  Transmission Date: 20050328
  Serious: Yes (Death, Hospitalization)
  Sender: FDA-Public Use
  Company Number: J/97/00641/SIM

PATIENT
  Age: 45 Year
  Sex: Female
  Weight: 46 kg

DRUGS (12)
  1. SANDIMMUNE [Suspect]
     Indication: RENAL TRANSPLANT
     Dosage: 100 MG/D
     Route: 048
     Dates: start: 19960213, end: 19961112
  2. SANDIMMUNE [Suspect]
     Dosage: 7.5 MG/D
     Route: 048
     Dates: start: 19961231
  3. SANDIMMUNE [Suspect]
     Dosage: 150 MG/D
     Route: 048
     Dates: start: 19950201, end: 19960212
  4. PREDONINE [Suspect]
     Indication: RENAL TRANSPLANT
     Dosage: 7.5 MG/D
     Route: 048
     Dates: start: 19960723, end: 19961112
  5. PREDONINE [Suspect]
     Dosage: 7.5, 5, 20, 15, 10 MG/D
     Route: 042
     Dates: start: 19961113, end: 19961230
  6. PREDONINE [Suspect]
     Dosage: 10 MG/D
     Route: 048
     Dates: start: 19950201, end: 19960722
  7. IMURAN [Suspect]
     Indication: RENAL TRANSPLANT
     Dosage: 25 MG/D
     Route: 048
     Dates: start: 19950627, end: 19961112
  8. BREDININ [Suspect]
     Indication: RENAL TRANSPLANT
     Dosage: 125 MG/D
     Route: 048
     Dates: start: 19950201, end: 19961112
  9. SANDIMMUNE [Suspect]
     Dosage: 70 MG/D
     Dates: start: 19961113, end: 19961113
  10. SANDIMMUNE [Suspect]
     Dosage: 40 MG/D
     Dates: start: 19961114, end: 19961117
  11. SANDIMMUNE [Suspect]
     Dosage: 50 MG/D
     Dates: start: 19961118, end: 19961119
  12. PROGRAF [Suspect]
     Indication: RENAL TRANSPLANT

REACTIONS (4)
  - C-REACTIVE PROTEIN INCREASED [None]
  - HEPATECTOMY [None]
  - HEPATIC NEOPLASM MALIGNANT [None]
  - PNEUMONIA [None]
